FAERS Safety Report 9171612 (Version 1)
Quarter: 2013Q1

REPORT INFORMATION
  Report Type: Spontaneous
  Country: JP (occurrence: JP)
  Receive Date: 20130319
  Receipt Date: 20130319
  Transmission Date: 20140127
  Serious: Yes (Death, Hospitalization, Other)
  Sender: FDA-Public Use
  Company Number: JP-ROCHE-1145920

PATIENT
  Age: 78 Year
  Sex: Male
  Weight: 63 kg

DRUGS (8)
  1. AVASTIN [Suspect]
     Indication: COLON CANCER METASTATIC
     Route: 041
     Dates: start: 20111006, end: 20120125
  2. AVASTIN [Suspect]
     Route: 041
     Dates: start: 20120208, end: 20120628
  3. AVASTIN [Suspect]
     Dosage: DOSAGE IS UNCERTAIN.
     Route: 041
     Dates: start: 20120823, end: 20120823
  4. ELPLAT [Suspect]
     Indication: COLON CANCER METASTATIC
     Dosage: DOSAGE IS UNCERTAIN.
     Route: 041
     Dates: start: 20100922, end: 20100922
  5. ELPLAT [Suspect]
     Indication: COLON CANCER METASTATIC
     Dosage: DOSAGE IS UNCERTAIN.
     Route: 041
     Dates: start: 20101007, end: 20101125
  6. ELPLAT [Suspect]
     Indication: COLON CANCER METASTATIC
     Dosage: DOSAGE IS UNCERTAIN.
     Route: 041
     Dates: start: 20110127, end: 20110810
  7. ELPLAT [Suspect]
     Indication: COLON CANCER METASTATIC
     Dosage: DOSAGE IS UNCERTAIN.
     Route: 041
     Dates: end: 20120531
  8. TS-1 [Suspect]
     Indication: COLON CANCER METASTATIC
     Dosage: FREQUENCY/DOSE INTERVAL: 14 TIMES/THREE WEEKS
     Route: 048
     Dates: start: 20120418, end: 20120904

REACTIONS (4)
  - Hepatic failure [Fatal]
  - Rash generalised [Recovered/Resolved]
  - Anaphylactic reaction [Unknown]
  - Anaphylactic reaction [Recovered/Resolved]
